FAERS Safety Report 8032541-2 (Version None)
Quarter: 2012Q1

REPORT INFORMATION
  Report Type: 
  Country: None (occurrence: None)
  Receive Date: 20120110
  Receipt Date: 20111227
  Transmission Date: 20120608
  Serious: Yes (Other)
  Sender: FDA-Public Use
  Company Number: US-RANBAXY-2011US-51619

PATIENT

DRUGS (3)
  1. CLINDAMYCIN HCL [Suspect]
     Indication: ABSCESS
     Dosage: 300 MG, TID
     Route: 065
  2. KLONOPIN [Concomitant]
     Indication: PRODUCT USED FOR UNKNOWN INDICATION
     Route: 065
  3. LEXAPRO [Concomitant]
     Indication: PRODUCT USED FOR UNKNOWN INDICATION
     Route: 065

REACTIONS (9)
  - RASH GENERALISED [None]
  - PRURITUS [None]
  - DEPRESSION [None]
  - ANXIETY [None]
  - PAIN IN JAW [None]
  - SWELLING FACE [None]
  - PANIC ATTACK [None]
  - DRUG HYPERSENSITIVITY [None]
  - ABSCESS RUPTURE [None]
